FAERS Safety Report 7577304-7 (Version None)
Quarter: 2011Q2

REPORT INFORMATION
  Report Type: 
  Country: None (occurrence: None)
  Receive Date: 20110628
  Receipt Date: 20110608
  Transmission Date: 20111010
  Serious: Yes (Death, Other)
  Sender: FDA-Public Use
  Company Number: US-BAYER-201041846NA

PATIENT
  Age: 92 Year
  Sex: Female
  Weight: 61.224 kg

DRUGS (15)
  1. VERSED [Concomitant]
     Dosage: UNK
     Dates: start: 20041004
  2. SUCCINYLCHOLINE CHLORIDE [Concomitant]
     Dosage: UNK
     Dates: start: 20041004
  3. MANNITOL [Concomitant]
     Dosage: 125 G, UNK
     Dates: start: 20041004
  4. TRASYLOL [Suspect]
     Indication: AORTIC VALVE REPLACEMENT
  5. HEPARIN [Concomitant]
     Dosage: 15000 U, UNK
     Dates: start: 20041004
  6. TRASYLOL [Suspect]
     Indication: CORONARY ARTERY BYPASS
     Dosage: 1 ML INTIAL TEST DOSE
     Route: 042
     Dates: start: 20041004, end: 20041004
  7. NORMOSOL [Concomitant]
     Dosage: 1000 ML, UNK
     Dates: start: 20041004
  8. DOPAMINE HCL [Concomitant]
     Dosage: UNK
     Dates: start: 20041004
  9. RED BLOOD CELLS [Concomitant]
     Dosage: 5 U, ONCE
     Route: 042
     Dates: start: 20041004
  10. TRASYLOL [Suspect]
     Indication: MITRAL VALVE REPLACEMENT
     Dosage: 200 ML LOADING DOSE
     Route: 042
     Dates: start: 20041004, end: 20041004
  11. NITROGLYCERIN [Concomitant]
     Dosage: UNK
     Dates: start: 20041004
  12. FRESH FROZEN PLASMA [Concomitant]
     Dosage: 4 U, ONCE
     Route: 042
     Dates: start: 20041004
  13. ALBUMIN (HUMAN) [Concomitant]
     Dosage: 125 G, UNK
     Dates: start: 20041004
  14. PROTAMINE SULFATE [Concomitant]
     Dosage: 200 MG, UNK
     Dates: start: 20041004
  15. PLATELETS [Concomitant]
     Dosage: 6 U, ONCE
     Route: 042
     Dates: start: 20041004

REACTIONS (12)
  - MULTI-ORGAN FAILURE [None]
  - FEAR [None]
  - RENAL FAILURE [None]
  - RENAL IMPAIRMENT [None]
  - INJURY [None]
  - RENAL INJURY [None]
  - ANXIETY [None]
  - PAIN [None]
  - DEATH [None]
  - STRESS [None]
  - EMOTIONAL DISTRESS [None]
  - UNEVALUABLE EVENT [None]
